FAERS Safety Report 5968000-8 (Version None)
Quarter: 2008Q4

REPORT INFORMATION
  Report Type: 
  Country: None (occurrence: None)
  Receive Date: 20081121
  Receipt Date: 20081106
  Transmission Date: 20090506
  Serious: Yes (Death, Life-Threatening)
  Sender: FDA-Public Use
  Company Number: 2008US003075

PATIENT
  Age: 68 Year
  Sex: Male

DRUGS (11)
  1. AMBISOME [Suspect]
     Indication: ASPERGILLOSIS
     Dosage: 150 MG, UID/QD; IV NOS
     Route: 042
     Dates: start: 20080924, end: 20080925
  2. VFEND [Concomitant]
  3. PN TWIN (AMINO ACIDS NOS, CARBOHYDRATES NOS, ELECTROLYTES NOS) [Concomitant]
  4. MVI (MITAMINS NOS) [Concomitant]
  5. HUMULIN R [Concomitant]
  6. BACTRIM [Concomitant]
  7. NEOPHAGEN (AMINOACETIC ACID, CYSTEINE HYDROCHLORIDE) [Concomitant]
  8. TATHION (GLUTATHIONE) [Concomitant]
  9. PREDNISOLONE [Concomitant]
  10. MOBENZOCIN (CEFTAZIDIME) [Concomitant]
  11. ZANTAC (RANTIDINE HYDROCHLORIDE) [Concomitant]

REACTIONS (5)
  - BLOOD PRESSURE DECREASED [None]
  - DEPRESSED LEVEL OF CONSCIOUSNESS [None]
  - HYPERKALAEMIA [None]
  - HYPOXIA [None]
  - RENAL IMPAIRMENT [None]
